FAERS Safety Report 8250393-2 (Version None)
Quarter: 2012Q2

REPORT INFORMATION
  Report Type: 
  Country: None (occurrence: None)
  Receive Date: 20120402
  Receipt Date: 20120323
  Transmission Date: 20120825
  Serious: Yes (Other)
  Sender: FDA-Public Use
  Company Number: US-JNJFOC-20120313107

PATIENT
  Age: 56 Year
  Sex: Female
  Weight: 61.24 kg

DRUGS (6)
  1. IMODIUM MULTI-SYMPTOM RELIEF [Suspect]
     Route: 048
  2. GLIPIZIDE [Concomitant]
     Indication: DIABETES MELLITUS
     Dosage: SINCE 7 MONTHS
     Route: 065
     Dates: start: 20110901
  3. IMODIUM MULTI-SYMPTOM RELIEF [Suspect]
     Indication: DIARRHOEA
     Route: 048
     Dates: start: 20120321, end: 20120321
  4. CRESTOR [Concomitant]
     Indication: BLOOD CHOLESTEROL INCREASED
     Dosage: SINCE 7 MONTHS
     Route: 065
     Dates: start: 20110901
  5. METFORMIN HCL [Concomitant]
     Indication: DIABETES MELLITUS
     Dosage: SINCE 7 MONTHS
     Route: 065
     Dates: start: 20110901
  6. RAMIPRIL [Concomitant]
     Indication: HYPERTENSION
     Dosage: SINCE 7 MONTHS
     Route: 065
     Dates: start: 20110901

REACTIONS (4)
  - BLOOD GLUCOSE INCREASED [None]
  - FAECES DISCOLOURED [None]
  - CONSTIPATION [None]
  - VOMITING [None]
